FAERS Safety Report 8848053 (Version 2)
Quarter: 2012Q4

REPORT INFORMATION
  Report Type: 
  Country: US (occurrence: US)
  Receive Date: 20121018
  Receipt Date: 20121116
  Transmission Date: 20130627
  Serious: Yes (Hospitalization)
  Sender: FDA-Public Use
  Company Number: US-ROCHE-1146166

PATIENT
  Sex: Female

DRUGS (4)
  1. PEGASYS [Suspect]
     Indication: CHRONIC HEPATITIS C
     Dosage: ProClick
     Route: 058
     Dates: start: 20120807
  2. TELAPREVIR [Suspect]
     Indication: CHRONIC HEPATITIS C
     Route: 065
  3. RIBASPHERE [Suspect]
     Indication: CHRONIC HEPATITIS C
     Dosage: in divided doses 600/600
     Route: 065
     Dates: start: 20120807, end: 20121011
  4. RIBASPHERE [Suspect]
     Route: 065
     Dates: start: 20121011

REACTIONS (5)
  - Haemoglobin decreased [Unknown]
  - Asthenia [Unknown]
  - Dizziness [Unknown]
  - Dysstasia [Unknown]
  - Nausea [Unknown]
